FAERS Safety Report 4604737-0 (Version None)
Quarter: 2005Q1

REPORT INFORMATION
  Report Type: 
  Country: None (occurrence: None)
  Receive Date: 20050224
  Receipt Date: 20050124
  Transmission Date: 20050727
  Serious: No
  Sender: FDA-Public Use
  Company Number: SU-2005-003036

PATIENT
  Age: 80 Year
  Sex: Female
  Weight: 78.0187 kg

DRUGS (3)
  1. BENICAR [Suspect]
     Indication: HYPERTENSION
     Dosage: 10 MG QD PO
     Route: 048
     Dates: start: 20040724
  2. PRILOSEC [Concomitant]
  3. TYLENOL (CAPLET) [Concomitant]

REACTIONS (7)
  - BLOOD PRESSURE DECREASED [None]
  - BURNING SENSATION [None]
  - PAIN IN EXTREMITY [None]
  - POLLAKIURIA [None]
  - PRURITUS GENERALISED [None]
  - RENAL PAIN [None]
  - STOMACH DISCOMFORT [None]
